FAERS Safety Report 4409404-4 (Version None)
Quarter: 2004Q3

REPORT INFORMATION
  Report Type: 
  Country: None (occurrence: None)
  Receive Date: 20040723
  Receipt Date: 20040714
  Transmission Date: 20050211
  Serious: Yes (Death)
  Sender: FDA-Public Use
  Company Number: 04-07-1009

PATIENT
  Age: 76 Year
  Sex: Male

DRUGS (1)
  1. QVAR [Suspect]
     Indication: ASTHMA
     Dosage: INHALATION
     Route: 055

REACTIONS (1)
  - BRONCHIAL CARCINOMA [None]
